FAERS Safety Report 4287870-5 (Version None)
Quarter: 2004Q1

REPORT INFORMATION
  Report Type: 
  Country: None (occurrence: None)
  Receive Date: 20040209
  Receipt Date: 20031017
  Transmission Date: 20041129
  Serious: No
  Sender: FDA-Public Use
  Company Number: US-GLAXOSMITHKLINE-A0430708A

PATIENT
  Age: 65 Year
  Sex: Female

DRUGS (2)
  1. PAXIL [Suspect]
     Dosage: 25MG PER DAY
     Route: 048
     Dates: start: 20030828
  2. TYLENOL PM [Concomitant]

REACTIONS (7)
  - FATIGUE [None]
  - FLASHBACK [None]
  - HEADACHE [None]
  - INCREASED APPETITE [None]
  - NERVOUSNESS [None]
  - PHOBIA [None]
  - UNEXPECTED THERAPEUTIC DRUG EFFECT [None]
